FAERS Safety Report 4491640-2 (Version None)
Quarter: 2004Q4

REPORT INFORMATION
  Report Type: 
  Country: None (occurrence: None)
  Receive Date: 20041029
  Receipt Date: 20041021
  Transmission Date: 20050328
  Serious: Yes (Hospitalization)
  Sender: FDA-Public Use
  Company Number: L04-JPN-06610-01

PATIENT
  Age: 40 Year
  Sex: Male

DRUGS (2)
  1. CARBAMAZEPINE [Suspect]
     Indication: DEPRESSION
  2. HAIKAZE L (R) [Concomitant]

REACTIONS (3)
  - ANTIBODY TEST POSITIVE [None]
  - DRUG HYPERSENSITIVITY [None]
  - SKIN TEST POSITIVE [None]
